FAERS Safety Report 4703065-2 (Version None)
Quarter: 2005Q2

REPORT INFORMATION
  Report Type: 
  Country: None (occurrence: None)
  Receive Date: 20050628
  Receipt Date: 20050628
  Transmission Date: 20051028
  Serious: Yes (Life-Threatening, Hospitalization)
  Sender: FDA-Public Use
  Company Number: None

PATIENT
  Age: 54 Year
  Sex: Male
  Weight: 75.2971 kg

DRUGS (12)
  1. GEODON [Suspect]
     Indication: SCHIZOPHRENIA, PARANOID TYPE
     Dosage: SEE IMAGE
  2. RISPERDAL [Concomitant]
  3. SEROQUEL [Concomitant]
  4. ASIKATID [Concomitant]
  5. ATENOLOL [Concomitant]
  6. BENZOTROPINE [Concomitant]
  7. TYLENOL [Concomitant]
  8. MILK OF MAGNESIA [Concomitant]
  9. MAALOX [Concomitant]
  10. CLOTRIMAZOLE [Concomitant]
  11. CARMOL [Concomitant]
  12. SUNSCREEN SPF-35 [Concomitant]

REACTIONS (12)
  - BAND NEUTROPHIL COUNT INCREASED [None]
  - BLOOD SODIUM DECREASED [None]
  - HEPATITIS ACUTE [None]
  - HYPOTENSION [None]
  - INFLAMMATION [None]
  - PHARYNGOLARYNGEAL PAIN [None]
  - POSTNASAL DRIP [None]
  - PYREXIA [None]
  - RASH MACULAR [None]
  - TACHYCARDIA [None]
  - URINARY TRACT INFECTION [None]
  - VIRAL INFECTION [None]
